FAERS Safety Report 13516088 (Version 1)
Quarter: 2017Q2

REPORT INFORMATION
  Report Type: Spontaneous
  Country: MY (occurrence: MY)
  Receive Date: 20170505
  Receipt Date: 20170505
  Transmission Date: 20170830
  Serious: Yes (Hospitalization)
  Sender: FDA-Public Use
  Company Number: MY-ROCHE-1915458

PATIENT
  Age: 62 Year
  Sex: Female
  Weight: 57.5 kg

DRUGS (5)
  1. PERJETA [Suspect]
     Active Substance: PERTUZUMAB
     Indication: BREAST CANCER METASTATIC
     Route: 042
     Dates: start: 20170224, end: 20170224
  2. DOCETAXEL. [Suspect]
     Active Substance: DOCETAXEL
     Indication: BREAST CANCER METASTATIC
     Route: 042
     Dates: start: 20170224, end: 20170224
  3. DEXAMETHASONE. [Concomitant]
     Active Substance: DEXAMETHASONE
     Dosage: ANTI EMETIC
     Route: 048
     Dates: start: 20170225, end: 20170227
  4. RANITIDINE. [Concomitant]
     Active Substance: RANITIDINE
     Dosage: FOR PROTON PUMP INHIBITORS
     Route: 048
     Dates: start: 20170225, end: 20170227
  5. HERCEPTIN [Suspect]
     Active Substance: TRASTUZUMAB
     Indication: BREAST CANCER METASTATIC
     Route: 042
     Dates: start: 20170224, end: 20170224

REACTIONS (4)
  - Cellulitis [Recovered/Resolved]
  - Infection [Unknown]
  - Tonsillitis [Recovered/Resolved]
  - Sepsis [Recovered/Resolved]

NARRATIVE: CASE EVENT DATE: 20170304
